FAERS Safety Report 12545317 (Version 2)
Quarter: 2016Q3

REPORT INFORMATION
  Report Type: Spontaneous
  Country: US (occurrence: US)
  Receive Date: 20160711
  Receipt Date: 20160823
  Transmission Date: 20161109
  Serious: Yes (Disabling, Other)
  Sender: FDA-Public Use
  Company Number: US-PFIZER INC-2015411790

PATIENT
  Age: 23 Year
  Sex: Female

DRUGS (1)
  1. CIPROFLOXACIN. [Suspect]
     Active Substance: CIPROFLOXACIN
     Indication: DIARRHOEA INFECTIOUS
     Dosage: 500 MG, 2X/DAY

REACTIONS (11)
  - Migraine [Not Recovered/Not Resolved]
  - Irritable bowel syndrome [Not Recovered/Not Resolved]
  - Nausea [Recovered/Resolved]
  - Cognitive disorder [Not Recovered/Not Resolved]
  - Tachycardia [Recovered/Resolved]
  - Diarrhoea [Not Recovered/Not Resolved]
  - Dizziness [Recovered/Resolved]
  - Upper respiratory tract infection [Unknown]
  - Fatigue [Not Recovered/Not Resolved]
  - Gastrointestinal pain [Not Recovered/Not Resolved]
  - Sinusitis [Not Recovered/Not Resolved]
